FAERS Safety Report 8391695-9 (Version None)
Quarter: 2012Q2

REPORT INFORMATION
  Report Type: 
  Country: None (occurrence: None)
  Receive Date: 20120529
  Receipt Date: 20120517
  Transmission Date: 20120825
  Serious: Yes (Hospitalization)
  Sender: FDA-Public Use
  Company Number: BR-ASTRAZENECA-2012SE32208

PATIENT
  Age: 66 Year
  Sex: Male
  Weight: 64 kg

DRUGS (5)
  1. ATACAND [Suspect]
     Indication: HYPERTENSION
     Route: 048
     Dates: end: 20120403
  2. JANUVIA [Concomitant]
     Indication: DIABETES MELLITUS
     Route: 048
  3. METFORMIN HYDROCHLORIDE [Concomitant]
     Indication: DIABETES MELLITUS
     Route: 048
  4. DIAMICRON [Concomitant]
     Indication: DIABETES MELLITUS
     Route: 048
  5. BRILINTA [Suspect]
     Indication: CORONARY ARTERY OCCLUSION
     Route: 048
     Dates: start: 20120407

REACTIONS (2)
  - CORONARY ARTERY OCCLUSION [None]
  - OFF LABEL USE [None]
